FAERS Safety Report 6071288-9 (Version None)
Quarter: 2009Q1

REPORT INFORMATION
  Report Type: 
  Country: None (occurrence: None)
  Receive Date: 20090209
  Receipt Date: 20090202
  Transmission Date: 20090719
  Serious: Yes (Hospitalization)
  Sender: FDA-Public Use
  Company Number: US-VALEANT-2009VX000195

PATIENT
  Age: 56 Year
  Sex: Female
  Weight: 47 kg

DRUGS (1)
  1. PRIMIDONE [Suspect]
     Route: 048
     Dates: start: 19950101, end: 19950101

REACTIONS (4)
  - AMNESIA [None]
  - COMA [None]
  - CONVULSION [None]
  - DRUG INEFFECTIVE [None]
